FAERS Safety Report 5901911-8 (Version None)
Quarter: 2008Q3

REPORT INFORMATION
  Report Type: 
  Country: None (occurrence: None)
  Receive Date: 20080925
  Receipt Date: 20080911
  Transmission Date: 20090109
  Serious: Yes (Disabling, Other)
  Sender: FDA-Public Use
  Company Number: 2008AL010660

PATIENT
  Age: 84 Year
  Sex: Male

DRUGS (5)
  1. GABAPENTIN [Suspect]
     Indication: NEURALGIA
     Dosage: 600 MG; TID; PO
     Route: 048
     Dates: start: 20060606
  2. DICLOFENAC SODIUM EXENDED-RELEASE TABLETS, 100 MG (PUREPAC) (DICLOFENA [Suspect]
     Indication: PAIN
     Dosage: PO
     Route: 048
     Dates: start: 20050101
  3. TRAMADOL HCL [Concomitant]
  4. ACETAMINOPHEN [Concomitant]
  5. SOFRAMYCIN [Concomitant]

REACTIONS (7)
  - ABASIA [None]
  - ARTHRALGIA [None]
  - ATAXIA [None]
  - CONDITION AGGRAVATED [None]
  - DIPLOPIA [None]
  - IMPAIRED DRIVING ABILITY [None]
  - PAIN [None]
